FAERS Safety Report 17826038 (Version 1)
Quarter: 2020Q2

REPORT INFORMATION
  Report Type: Spontaneous
  Country: DE (occurrence: DE)
  Receive Date: 20200526
  Receipt Date: 20200526
  Transmission Date: 20200714
  Serious: Yes (Congenital Anomaly, Other)
  Sender: FDA-Public Use
  Company Number: DE-PFIZER INC-2020206096

PATIENT
  Age: 1 Day
  Sex: Male
  Weight: 3.23 kg

DRUGS (5)
  1. ANTABUS [Suspect]
     Active Substance: DISULFIRAM
     Indication: ALCOHOLISM
     Dosage: 1000 MG, WEEKLY (500 MG (2 X/WEEK) ] 2 SEPARATED DOSES
     Route: 064
  2. SERTRALINE HCL [Suspect]
     Active Substance: SERTRALINE HYDROCHLORIDE
     Indication: ANXIETY DISORDER
     Dosage: 100 MG, 1X/DAY
     Route: 064
     Dates: start: 20180828, end: 20190515
  3. EPHEDRIN [Concomitant]
     Active Substance: EPHEDRINE HYDROCHLORIDE
     Indication: SUBSTANCE USE
     Dosage: IT WAS DETECTED IN DRUG SCREENING 3 MONTHS AFTER DELIVERY, UNKNOWN IF TAKEN DURING PREGNANCY
     Route: 064
  4. QUETIAPINE. [Suspect]
     Active Substance: QUETIAPINE
     Indication: PSYCHOTIC DISORDER
     Dosage: 200 MG, DAILY (TWO TIMES A DAY 100 MG/DAY)
     Route: 064
     Dates: start: 20180828, end: 20190515
  5. FOLSAN [Concomitant]
     Active Substance: FOLIC ACID
     Indication: PROPHYLAXIS OF NEURAL TUBE DEFECT
     Dosage: 5 MG, DAILY
     Route: 064

REACTIONS (4)
  - Hypertonia neonatal [Recovered/Resolved]
  - Maternal exposure during pregnancy [Recovered/Resolved]
  - Atrial septal defect [Recovered/Resolved]
  - Agitation neonatal [Recovered/Resolved]

NARRATIVE: CASE EVENT DATE: 20190515
